FAERS Safety Report 7595609-0 (Version None)
Quarter: 2011Q3

REPORT INFORMATION
  Report Type: 
  Country: None (occurrence: None)
  Receive Date: 20110707
  Receipt Date: 20110608
  Transmission Date: 20111222
  Serious: Yes (Hospitalization)
  Sender: FDA-Public Use
  Company Number: JP-GLAXOSMITHKLINE-B0725375A

PATIENT
  Sex: Female

DRUGS (3)
  1. ZONISAMIDE [Concomitant]
     Indication: CONVULSION PROPHYLAXIS
     Route: 048
     Dates: start: 20110221, end: 20110607
  2. LAMICTAL [Suspect]
     Indication: CONVULSION PROPHYLAXIS
     Dosage: 50MG PER DAY
     Route: 048
     Dates: start: 20110526, end: 20110607
  3. GABAPENTIN [Concomitant]
     Indication: CONVULSION PROPHYLAXIS
     Dosage: 1200MG PER DAY
     Route: 048
     Dates: start: 20110221, end: 20110526

REACTIONS (5)
  - DRUG ERUPTION [None]
  - HEPATOMEGALY [None]
  - HYPERTHERMIA [None]
  - COAGULATION TEST ABNORMAL [None]
  - WHITE BLOOD CELL COUNT DECREASED [None]
